FAERS Safety Report 23989370 (Version 1)
Quarter: 2024Q2

REPORT INFORMATION
  Report Type: Spontaneous
  Country: US (occurrence: US)
  Receive Date: 20240619
  Receipt Date: 20240619
  Transmission Date: 20240716
  Serious: Yes (Hospitalization, Other)
  Sender: FDA-Public Use
  Company Number: US-MLMSERVICE-20240405-PI017016-00034-1

PATIENT
  Age: 72 Year
  Sex: Female

DRUGS (6)
  1. AMIODARONE HYDROCHLORIDE [Interacting]
     Active Substance: AMIODARONE HYDROCHLORIDE
     Indication: Atrial fibrillation
     Dosage: 150 MILLIGRAM (BOLUS)
     Route: 042
     Dates: start: 202104, end: 202104
  2. AMIODARONE HYDROCHLORIDE [Interacting]
     Active Substance: AMIODARONE HYDROCHLORIDE
     Indication: Atrial fibrillation
     Dosage: 400 MILLIGRAM, TWO TIMES A DAY
     Route: 048
     Dates: start: 202104
  3. APIXABAN [Interacting]
     Active Substance: APIXABAN
     Indication: Anticoagulant therapy
     Dosage: 400 MILLIGRAM, TWO TIMES A DAY
     Route: 048
     Dates: start: 202104, end: 202104
  4. APIXABAN [Interacting]
     Active Substance: APIXABAN
     Indication: Prophylaxis
  5. NITROGLYCERIN [Concomitant]
     Active Substance: NITROGLYCERIN
     Indication: Chest pain
     Dosage: UNK
     Route: 065
  6. ASPIRIN [Concomitant]
     Active Substance: ASPIRIN
     Indication: Chest pain
     Dosage: UNK
     Route: 065

REACTIONS (4)
  - Pericardial haemorrhage [Unknown]
  - Pericardial effusion [Unknown]
  - Electrocardiogram ST segment elevation [Unknown]
  - Drug interaction [Unknown]

NARRATIVE: CASE EVENT DATE: 20210401
